FAERS Safety Report 8816874 (Version 1)
Quarter: 2012Q4

REPORT INFORMATION
  Report Type: Spontaneous
  Country: US (occurrence: None)
  Receive Date: 20121002
  Receipt Date: 20121002
  Transmission Date: 20130627
  Serious: Yes (Other)
  Sender: FDA-Public Use
  Company Number: ADR-2012-01789

PATIENT
  Sex: Female

DRUGS (2)
  1. BACLOFEN INTRATHECAL(BACLOFEN INJECTION) [Suspect]
     Indication: PAIN
  2. BACLOFEN INTRATHECAL(BACLOFEN INJECTION) [Suspect]
     Indication: COMPLEX REGIONAL PAIN SYNDROME

REACTIONS (3)
  - Hypersensitivity [None]
  - Vomiting [None]
  - Exercise lack of [None]
